FAERS Safety Report 12103171 (Version 1)
Quarter: 2016Q1

REPORT INFORMATION
  Report Type: Other
  Country: US (occurrence: US)
  Receive Date: 20160222
  Receipt Date: 20160222
  Transmission Date: 20160526
  Serious: No
  Sender: FDA-Public Use
  Company Number: US-ACORDA-ACO_113362_2015

PATIENT
  Sex: Female

DRUGS (3)
  1. AMPYRA [Suspect]
     Active Substance: DALFAMPRIDINE
     Indication: PRODUCT USED FOR UNKNOWN INDICATION
     Dosage: UNK
     Route: 065
  2. COPAXONE [Suspect]
     Active Substance: GLATIRAMER ACETATE
     Indication: PROGRESSIVE MULTIPLE SCLEROSIS
     Dosage: UNK
     Route: 065
  3. REBIF [Suspect]
     Active Substance: INTERFERON BETA-1A
     Indication: MULTIPLE SCLEROSIS
     Dosage: UNK
     Route: 065

REACTIONS (6)
  - Influenza like illness [Unknown]
  - Injection site swelling [Unknown]
  - Glossodynia [Unknown]
  - Paraesthesia [Unknown]
  - Injection site erythema [Unknown]
  - Injection site pain [Unknown]
